FAERS Safety Report 8870988 (Version 1)
Quarter: 2012Q4

REPORT INFORMATION
  Report Type: Spontaneous
  Country: US (occurrence: None)
  Receive Date: 20121031
  Receipt Date: 20121031
  Transmission Date: 20130627
  Serious: Yes (Hospitalization, Other)
  Sender: FDA-Public Use
  Company Number: None

PATIENT
  Age: 48 None
  Sex: Female
  Weight: 86.18 kg

DRUGS (3)
  1. METHYLPREDNISOLONE [Suspect]
     Indication: MYASTHENIA GRAVIS
     Dosage: Methylprednisone IV DRIP
     Route: 041
     Dates: start: 20120917, end: 20120921
  2. IVIG [Suspect]
     Indication: MYASTHENIA GRAVIS
     Dosage: IVIG IV Drip
     Route: 041
     Dates: start: 20120917, end: 20120921
  3. HYDRALAZINE [Suspect]
     Indication: HIGH PULSE RATE
     Route: 030
     Dates: start: 20120921, end: 20120921

REACTIONS (1)
  - Fungal skin infection [None]
